FAERS Safety Report 9944130 (Version 1)
Quarter: 2014Q1

REPORT INFORMATION
  Report Type: Report from Study
  Country: US (occurrence: US)
  Receive Date: 20140303
  Receipt Date: 20140303
  Transmission Date: 20141002
  Serious: No
  Sender: FDA-Public Use
  Company Number: US-ABBVIE-13P-163-1053210-00

PATIENT
  Sex: Female
  Weight: 45.4 kg

DRUGS (6)
  1. HUMIRA [Suspect]
     Indication: CROHN^S DISEASE
     Dates: start: 20121116, end: 20121116
  2. HUMIRA [Suspect]
  3. HUMIRA [Suspect]
     Dates: start: 201212
  4. MERCAPTOPURINE [Concomitant]
     Indication: CROHN^S DISEASE
  5. BALSALAZIDE [Concomitant]
     Indication: CROHN^S DISEASE
  6. MULTIVITAMIN [Concomitant]
     Indication: SUPPLEMENTATION THERAPY

REACTIONS (2)
  - Injection site erythema [Recovered/Resolved]
  - Injection site pruritus [Recovered/Resolved]
